FAERS Safety Report 6485394-8 (Version None)
Quarter: 2009Q4

REPORT INFORMATION
  Report Type: 
  Country: None (occurrence: None)
  Receive Date: 20091204
  Receipt Date: 20091112
  Transmission Date: 20100525
  Serious: Yes (Hospitalization)
  Sender: FDA-Public Use
  Company Number: DSA_42088_2009

PATIENT
  Sex: Male

DRUGS (9)
  1. DILTIAZEM HCL [Suspect]
     Indication: SUICIDE ATTEMPT
     Dosage: (NOT THE PRESCRIBED AMOUNT)
  2. LORAZEPAM [Suspect]
     Indication: SUICIDE ATTEMPT
     Dosage: (NOT THE PRESCRIBED AMOUNT)
  3. TRANXILIUM (TRANXILIUM-CLORAZEPATE POTASSIUM) (NOT SPECIFIED) [Suspect]
     Indication: SUICIDE ATTEMPT
     Dosage: (NOT THE PRESCRIBED AMOUNT)
  4. AMLODIPINE BESYLATE [Suspect]
     Indication: SUICIDE ATTEMPT
     Dosage: (NOT THE PRESCRIBED AMOUNT)
  5. FLUOXETINE [Suspect]
     Indication: SUICIDE ATTEMPT
     Dosage: (NOT THE PRESCRIBED AMOUNT)
  6. PROMETHAZINE [Suspect]
     Indication: SUICIDE ATTEMPT
     Dosage: (NOT THE PRESCRIBED AMOUNT)
  7. TIMONIL (TIMONIL-CARBAMAZEPINE) (NOT SPECIFIED) [Suspect]
     Indication: SUICIDE ATTEMPT
     Dosage: (NOT THE PRESCRIBED AMOUNT)
  8. LYRICA [Suspect]
     Indication: SUICIDE ATTEMPT
     Dosage: (NOT THE PRESCRIBED AMOUNT)
  9. CO-DIOVANE (CO-DIOVAN-HYDROCHLOROTHIAZIDE/VALSARTAN) (NOT SPECIFIED) [Suspect]
     Indication: SUICIDE ATTEMPT
     Dosage: (NOT THE PRESCRIBED AMOUNT)

REACTIONS (5)
  - GASTROINTESTINAL SOUNDS ABNORMAL [None]
  - INCORRECT DOSE ADMINISTERED [None]
  - INTENTIONAL SELF-INJURY [None]
  - SOMNOLENCE [None]
  - SUICIDE ATTEMPT [None]
